FAERS Safety Report 12203757 (Version 3)
Quarter: 2016Q2

REPORT INFORMATION
  Report Type: Spontaneous
  Country: ES (occurrence: ES)
  Receive Date: 20160323
  Receipt Date: 20160414
  Transmission Date: 20160815
  Serious: Yes (Hospitalization, Other)
  Sender: FDA-Public Use
  Company Number: PHHY2016ES034803

PATIENT
  Age: 21 Year
  Sex: Male

DRUGS (7)
  1. IRON [Concomitant]
     Active Substance: IRON
     Indication: IRON DEFICIENCY ANAEMIA
     Route: 048
  2. OCTREOTIDE. [Suspect]
     Active Substance: OCTREOTIDE
     Dosage: 20 MG, QMO
     Route: 058
     Dates: start: 201203, end: 201408
  3. OCTREOTIDE. [Suspect]
     Active Substance: OCTREOTIDE
     Indication: ANAEMIA
     Dosage: 200 UG, QW
     Route: 058
     Dates: start: 201201
  4. OCTREOTIDE. [Suspect]
     Active Substance: OCTREOTIDE
     Route: 065
     Dates: start: 201501
  5. VITAMIN K//PHYTOMENADIONE [Concomitant]
     Indication: LOWER GASTROINTESTINAL HAEMORRHAGE
     Route: 042
  6. IRON [Concomitant]
     Active Substance: IRON
     Route: 042
  7. FOLIC ACID. [Concomitant]
     Active Substance: FOLIC ACID
     Indication: IRON DEFICIENCY ANAEMIA
     Route: 048

REACTIONS (4)
  - Diarrhoea [Unknown]
  - Off label use [Unknown]
  - Osteonecrosis [Recovering/Resolving]
  - Discomfort [Unknown]

NARRATIVE: CASE EVENT DATE: 2012
